FAERS Safety Report 7893171-6 (Version None)
Quarter: 2011Q4

REPORT INFORMATION
  Report Type: 
  Country: None (occurrence: None)
  Receive Date: 20111104
  Receipt Date: 20111027
  Transmission Date: 20120403
  Serious: Yes (Hospitalization)
  Sender: FDA-Public Use
  Company Number: PHHY2011ES94969

PATIENT
  Age: 5 Year
  Sex: Male

DRUGS (1)
  1. EXJADE [Suspect]

REACTIONS (12)
  - HYPONATRAEMIA [None]
  - GLYCOSURIA [None]
  - ABDOMINAL PAIN [None]
  - FEMUR FRACTURE [None]
  - RENAL TUBULAR ACIDOSIS [None]
  - ACIDOSIS [None]
  - VOMITING [None]
  - DEHYDRATION [None]
  - CONSTIPATION [None]
  - URINE URIC ACID ABNORMAL [None]
  - URINE SODIUM ABNORMAL [None]
  - NAUSEA [None]
